FAERS Safety Report 16809971 (Version 1)
Quarter: 2019Q3

REPORT INFORMATION
  Report Type: Spontaneous
  Country: US (occurrence: US)
  Receive Date: 20190916
  Receipt Date: 20190916
  Transmission Date: 20191005
  Serious: No
  Sender: FDA-Public Use
  Company Number: US-AMGEN-USASP2019151004

PATIENT
  Sex: Female

DRUGS (4)
  1. CORLANOR [Suspect]
     Active Substance: IVABRADINE HYDROCHLORIDE
     Indication: SINUS TACHYCARDIA
     Dosage: 5 MILLIGRAM, BID
     Route: 065
     Dates: start: 20190712, end: 2019
  2. CORLANOR [Suspect]
     Active Substance: IVABRADINE HYDROCHLORIDE
     Dosage: 2.5 MILLIGRAM, BID; HALF 5MG TABLET TWICE A DAY
     Route: 065
     Dates: start: 20190808, end: 2019
  3. CORLANOR [Suspect]
     Active Substance: IVABRADINE HYDROCHLORIDE
     Dosage: 2.5 MILLIGRAM, BID
     Route: 065
     Dates: start: 2019
  4. HUMIRA [Concomitant]
     Active Substance: ADALIMUMAB
     Dosage: UNK
     Dates: end: 2019

REACTIONS (4)
  - Blood pressure decreased [Not Recovered/Not Resolved]
  - Balance disorder [Not Recovered/Not Resolved]
  - Inner ear disorder [Not Recovered/Not Resolved]
  - Heart rate decreased [Not Recovered/Not Resolved]

NARRATIVE: CASE EVENT DATE: 2019
